FAERS Safety Report 4437516-8 (Version None)
Quarter: 2004Q3

REPORT INFORMATION
  Report Type: 
  Country: None (occurrence: None)
  Receive Date: 20040831
  Receipt Date: 20040823
  Transmission Date: 20050211
  Serious: Yes (Other)
  Sender: FDA-Public Use
  Company Number: US-JNJFOC-20040708226

PATIENT
  Sex: Male
  Weight: 112.04 kg

DRUGS (4)
  1. REMICADE [Suspect]
     Dosage: EVERY 8 WEEKS
     Route: 042
  2. REMICADE [Suspect]
     Dosage: EVERY 8 WEEKS
     Route: 042
  3. ACTONEL [Concomitant]
     Indication: OSTEOPOROSIS
     Route: 049
  4. PREDNISONE [Concomitant]
     Dosage: ^1990^S AND ON^
     Route: 049

REACTIONS (1)
  - PROSTATE CANCER [None]
